FAERS Safety Report 8622482-1 (Version None)
Quarter: 2012Q3

REPORT INFORMATION
  Report Type: 
  Country: None (occurrence: None)
  Receive Date: 20120827
  Receipt Date: 20120821
  Transmission Date: 20120928
  Serious: No
  Sender: FDA-Public Use
  Company Number: US-PFIZER INC-2012205610

PATIENT
  Age: 27 Year
  Sex: Female
  Weight: 68.027 kg

DRUGS (1)
  1. ADVIL MIGRAINE LIQUI-GELS [Suspect]
     Indication: MIGRAINE
     Dosage: UNK, DAILY
     Dates: start: 20120801, end: 20120801

REACTIONS (2)
  - RASH [None]
  - PRURITUS [None]
